FAERS Safety Report 10082255 (Version 2)
Quarter: 2014Q2

REPORT INFORMATION
  Report Type: Spontaneous
  Country: US (occurrence: US)
  Receive Date: 20140416
  Receipt Date: 20140428
  Transmission Date: 20141212
  Serious: No
  Sender: FDA-Public Use
  Company Number: US-ELI_LILLY_AND_COMPANY-US201404002793

PATIENT
  Age: 57 Year
  Sex: Male

DRUGS (5)
  1. CIALIS [Suspect]
     Indication: BENIGN PROSTATIC HYPERPLASIA
     Dosage: 5 MG, QD
     Route: 065
  2. SYNTHROID [Concomitant]
     Dosage: 150 UG, QD
  3. MULTIVITAMIN                       /00831701/ [Concomitant]
  4. FISH OIL [Concomitant]
  5. ASPIRIN [Concomitant]
     Dosage: 81 MG, PRN

REACTIONS (6)
  - Vision blurred [Recovering/Resolving]
  - Dry eye [Unknown]
  - Dyspnoea [Unknown]
  - Headache [Unknown]
  - Myalgia [Unknown]
  - Blood pressure decreased [Unknown]
